FAERS Safety Report 8664012 (Version 4)
Quarter: 2013Q3

REPORT INFORMATION
  Report Type: Report from Study
  Country: JP (occurrence: JP)
  Receive Date: 20120713
  Receipt Date: 20130926
  Transmission Date: 20140515
  Serious: Yes (Other)
  Sender: FDA-Public Use
  Company Number: JP-VERTEX PHARMACEUTICALS INC.-AE-2012-010032

PATIENT
  Age: 57 Year
  Sex: Female

DRUGS (13)
  1. VX-950 (TELAPREVIR) [Suspect]
     Indication: CHRONIC HEPATITIS C
     Dosage: 2250 MG, QD
     Route: 048
     Dates: start: 20120106, end: 20120330
  2. REBETOL [Suspect]
     Indication: CHRONIC HEPATITIS C
     Dosage: 600 MG, QD
     Route: 048
     Dates: start: 20120106, end: 20120301
  3. REBETOL [Suspect]
     Dosage: 600 MG/2 DAYS
     Route: 048
     Dates: start: 20120302, end: 20120307
  4. REBETOL [Suspect]
     Dosage: 400 MG/ 2 DAYS
     Route: 048
     Dates: start: 20120303, end: 20120308
  5. REBETOL [Suspect]
     Dosage: 400 MG, QD
     Route: 048
     Dates: start: 20120309, end: 20120406
  6. REBETOL [Suspect]
     Dosage: 200 MG, QD
     Route: 048
     Dates: start: 20120416, end: 20120423
  7. PEGINTRON [Suspect]
     Indication: CHRONIC HEPATITIS C
     Dosage: 80 ?G, QW
     Route: 058
     Dates: start: 20120106, end: 20120409
  8. PEGINTRON [Suspect]
     Dosage: 80 ?G, QW
     Route: 058
     Dates: start: 20120413, end: 20120420
  9. PARIET [Concomitant]
     Dosage: 10 MG, QD
     Route: 048
  10. ALLEGRA [Concomitant]
     Dosage: 120 MG, QD
     Route: 048
     Dates: start: 20120106, end: 20120426
  11. RIKKUNSHITO [Concomitant]
     Dosage: 7.5 G, QD
     Route: 048
     Dates: start: 20120106, end: 20120426
  12. ALDACTONE A [Concomitant]
     Dosage: 50 MG, QD
     Route: 048
     Dates: end: 20120219
  13. ALDACTONE A [Concomitant]
     Dosage: 30 MG, QD
     Route: 048
     Dates: end: 20120219

REACTIONS (2)
  - Retinopathy [Unknown]
  - Haemoglobin decreased [Recovered/Resolved]
